FAERS Safety Report 17012776 (Version 1)
Quarter: 2019Q4

REPORT INFORMATION
  Report Type: Spontaneous
  Country: US (occurrence: US)
  Receive Date: 20191109
  Receipt Date: 20191109
  Transmission Date: 20200122
  Serious: No
  Sender: FDA-Public Use
  Company Number: US-GLAXOSMITHKLINE-US2019200008

PATIENT
  Sex: Female

DRUGS (2)
  1. NICODERM CQ [Suspect]
     Active Substance: NICOTINE
     Indication: SMOKING CESSATION THERAPY
     Dosage: 21 MG, UNK
  2. NICODERM CQ [Suspect]
     Active Substance: NICOTINE
     Dosage: UNK
     Route: 065

REACTIONS (14)
  - Rash [Recovered/Resolved with Sequelae]
  - Application site discolouration [Recovered/Resolved with Sequelae]
  - Malaise [Recovered/Resolved with Sequelae]
  - Nausea [Recovered/Resolved with Sequelae]
  - Oropharyngeal discomfort [Recovered/Resolved with Sequelae]
  - Product selection error [Unknown]
  - Application site pain [Recovered/Resolved with Sequelae]
  - Application site pruritus [Recovered/Resolved with Sequelae]
  - Nicotine dependence [Recovered/Resolved with Sequelae]
  - Urticaria [Recovered/Resolved with Sequelae]
  - Application site reaction [Recovered/Resolved with Sequelae]
  - Application site scar [Recovered/Resolved with Sequelae]
  - Application site erythema [Recovered/Resolved with Sequelae]
  - Application site swelling [Recovered/Resolved with Sequelae]
